FAERS Safety Report 14309628 (Version 1)
Quarter: 2017Q4

REPORT INFORMATION
  Report Type: Report from Study
  Country: US (occurrence: US)
  Receive Date: 20171220
  Receipt Date: 20171220
  Transmission Date: 20180321
  Serious: Yes (Other)
  Sender: FDA-Public Use
  Company Number: PHEH2017US040346

PATIENT
  Age: 39 Year
  Sex: Male

DRUGS (1)
  1. COSENTYX [Suspect]
     Active Substance: SECUKINUMAB
     Indication: PRODUCT USED FOR UNKNOWN INDICATION
     Dosage: 300 MG, QMO
     Route: 042
     Dates: start: 20170705

REACTIONS (5)
  - Erythema [Unknown]
  - Swelling [Unknown]
  - Localised infection [Unknown]
  - Purulent discharge [Unknown]
  - Product use issue [Unknown]

NARRATIVE: CASE EVENT DATE: 20171120
